FAERS Safety Report 8567923-3 (Version None)
Quarter: 2012Q3

REPORT INFORMATION
  Report Type: 
  Country: None (occurrence: None)
  Receive Date: 20120803
  Receipt Date: 20120726
  Transmission Date: 20120928
  Serious: Yes (Other)
  Sender: FDA-Public Use
  Company Number: BR-ROCHE-1061599

PATIENT
  Sex: Female
  Weight: 85 kg

DRUGS (7)
  1. LOSARTAN POTASSIUM [Concomitant]
  2. ADALAT [Concomitant]
  3. ACTEMRA [Suspect]
     Indication: RHEUMATOID ARTHRITIS
     Route: 042
     Dates: start: 20110503, end: 20111117
  4. TRAMADOL HYDROCHLORIDE [Concomitant]
  5. LYRICA [Concomitant]
  6. PREDNISONE [Concomitant]
  7. ACETAMINOPHEN W/ CODEINE [Concomitant]

REACTIONS (5)
  - RENAL FAILURE [None]
  - RED BLOOD CELL SEDIMENTATION RATE ABNORMAL [None]
  - BLOOD TEST ABNORMAL [None]
  - HYPERTENSION [None]
  - SWELLING [None]
